FAERS Safety Report 10080591 (Version 1)
Quarter: 2014Q2

REPORT INFORMATION
  Report Type: Spontaneous
  Country: NL (occurrence: None)
  Receive Date: 20140414
  Receipt Date: 20140414
  Transmission Date: 20141212
  Serious: Yes (Death, Hospitalization)
  Sender: FDA-Public Use
  Company Number: 2014P1002935

PATIENT
  Age: 67 Year
  Sex: Female

DRUGS (3)
  1. RIFAMPIN [Suspect]
     Indication: WOUND INFECTION STAPHYLOCOCCAL
     Route: 048
  2. RIVAROXABAN [Suspect]
     Indication: INTERNATIONAL NORMALISED RATIO ABNORMAL
     Route: 048
  3. CIPROFLOXACIN [Concomitant]

REACTIONS (10)
  - Chest pain [None]
  - Dyspnoea [None]
  - Tachypnoea [None]
  - Hyperhidrosis [None]
  - Hypotension [None]
  - Tachycardia [None]
  - Acute coronary syndrome [None]
  - Sepsis [None]
  - Pulmonary embolism [None]
  - General physical health deterioration [None]
